FAERS Safety Report 11116411 (Version 1)
Quarter: 2015Q2

REPORT INFORMATION
  Report Type: Spontaneous
  Country: US (occurrence: US)
  Receive Date: 20150515
  Receipt Date: 20150515
  Transmission Date: 20150821
  Serious: Yes (Other)
  Sender: FDA-Public Use
  Company Number: US-ELI_LILLY_AND_COMPANY-US201505001228

PATIENT
  Sex: Male

DRUGS (4)
  1. CYRAMZA [Suspect]
     Active Substance: RAMUCIRUMAB
     Indication: NON-SMALL CELL LUNG CANCER
     Dosage: 10 MG/KG, UNKNOWN
     Dates: start: 20150406
  2. DOCETAXEL. [Suspect]
     Active Substance: DOCETAXEL
     Indication: NON-SMALL CELL LUNG CANCER
     Dosage: UNK
     Route: 065
     Dates: start: 20150406
  3. DOCETAXEL. [Suspect]
     Active Substance: DOCETAXEL
     Dosage: 20% REDUCED DOSE
     Route: 065
     Dates: start: 20150504
  4. CYRAMZA [Suspect]
     Active Substance: RAMUCIRUMAB
     Dosage: 20% REDUCED DOSE
     Dates: start: 20150504

REACTIONS (1)
  - Intestinal perforation [Unknown]

NARRATIVE: CASE EVENT DATE: 201504
